FAERS Safety Report 6769244-8 (Version None)
Quarter: 2010Q2

REPORT INFORMATION
  Report Type: 
  Country: None (occurrence: None)
  Receive Date: 20100615
  Receipt Date: 20100604
  Transmission Date: 20101027
  Serious: No
  Sender: FDA-Public Use
  Company Number: US-JNJFOC-20100602278

PATIENT
  Sex: Female
  Weight: 104.33 kg

DRUGS (6)
  1. FENTANYL [Suspect]
     Indication: PAIN
     Route: 062
  2. FENTANYL [Suspect]
     Route: 062
  3. CYMBALTA [Concomitant]
     Indication: NERVOUSNESS
     Route: 048
  4. SOMA [Concomitant]
     Indication: FIBROMYALGIA
     Dosage: 1 AT BED TIME
     Route: 048
  5. SOMA [Concomitant]
     Indication: MUSCLE DISORDER
     Dosage: 1 AT BED TIME
     Route: 048
  6. NEURONTIN [Concomitant]
     Indication: PAIN IN EXTREMITY
     Route: 048

REACTIONS (4)
  - HYPERTENSION [None]
  - PAIN [None]
  - PRODUCT QUALITY ISSUE [None]
  - TREATMENT NONCOMPLIANCE [None]
